FAERS Safety Report 17739558 (Version 1)
Quarter: 2020Q2

REPORT INFORMATION
  Report Type: Spontaneous
  Country: US (occurrence: US)
  Receive Date: 20200504
  Receipt Date: 20200504
  Transmission Date: 20200714
  Serious: No
  Sender: FDA-Public Use
  Company Number: US-ELI_LILLY_AND_COMPANY-US202004012111

PATIENT
  Sex: Female

DRUGS (1)
  1. CYMBALTA [Suspect]
     Active Substance: DULOXETINE HYDROCHLORIDE
     Indication: PRODUCT USED FOR UNKNOWN INDICATION
     Dosage: UNK, DAILY
     Route: 048

REACTIONS (7)
  - Insomnia [Unknown]
  - Dry mouth [Unknown]
  - Myalgia [Unknown]
  - Headache [Unknown]
  - Dry skin [Unknown]
  - Dizziness [Unknown]
  - Drug hypersensitivity [Unknown]
